FAERS Safety Report 12628991 (Version 1)
Quarter: 2016Q3

REPORT INFORMATION
  Report Type: Spontaneous
  Country: US (occurrence: US)
  Receive Date: 20160808
  Receipt Date: 20160808
  Transmission Date: 20161109
  Serious: Yes (Other)
  Sender: FDA-Public Use
  Company Number: US-AMGEN-USASP2016099852

PATIENT
  Age: 70 Year
  Sex: Female

DRUGS (2)
  1. FASLODEX [Concomitant]
     Active Substance: FULVESTRANT
     Dosage: 500 MG, QMO
     Route: 030
  2. XGEVA [Suspect]
     Active Substance: DENOSUMAB
     Indication: BONE CANCER METASTATIC
     Dosage: 120 MG, Q4WK
     Route: 065
     Dates: start: 201503

REACTIONS (4)
  - Off label use [Unknown]
  - Malignant neoplasm progression [Not Recovered/Not Resolved]
  - Metastases to liver [Unknown]
  - Metastases to bone [Unknown]

NARRATIVE: CASE EVENT DATE: 201607
